FAERS Safety Report 14261838 (Version 2)
Quarter: 2018Q1

REPORT INFORMATION
  Report Type: Spontaneous
  Country: US (occurrence: US)
  Receive Date: 20171208
  Receipt Date: 20180214
  Transmission Date: 20180508
  Serious: Yes (Death)
  Sender: FDA-Public Use
  Company Number: US-BEH-2017085813

PATIENT
  Age: 79 Year
  Sex: Male

DRUGS (2)
  1. THIAMINE. [Suspect]
     Active Substance: THIAMINE
     Indication: MARCHIAFAVA-BIGNAMI DISEASE
     Route: 042
  2. HUMAN IMMUNOGLOBULIN IV (INN) [Suspect]
     Active Substance: HUMAN IMMUNOGLOBULIN G
     Indication: MARCHIAFAVA-BIGNAMI DISEASE
     Dosage: 400 MG/KG, QOD
     Route: 042

REACTIONS (1)
  - Drug ineffective for unapproved indication [Fatal]
